FAERS Safety Report 7895270-1 (Version None)
Quarter: 2011Q4

REPORT INFORMATION
  Report Type: 
  Country: None (occurrence: None)
  Receive Date: 20111102
  Receipt Date: 20111021
  Transmission Date: 20120403
  Serious: Yes (Hospitalization)
  Sender: FDA-Public Use
  Company Number: INT_00028_2011

PATIENT
  Age: 58 Year
  Sex: Female

DRUGS (2)
  1. VANCOMYCIN [Concomitant]
  2. CEFEPIME [Suspect]
     Indication: OSTEOMYELITIS
     Dosage: (DF);

REACTIONS (7)
  - RENAL FAILURE ACUTE [None]
  - HALLUCINATION, VISUAL [None]
  - CONFUSIONAL STATE [None]
  - HYPERKALAEMIA [None]
  - MYOCLONUS [None]
  - ENCEPHALOPATHY [None]
  - NEUROTOXICITY [None]
